FAERS Safety Report 4846611-0 (Version None)
Quarter: 2005Q4

REPORT INFORMATION
  Report Type: 
  Country: None (occurrence: None)
  Receive Date: 20051202
  Receipt Date: 20051121
  Transmission Date: 20060501
  Serious: Yes (Hospitalization)
  Sender: FDA-Public Use
  Company Number: ST-2005-008673

PATIENT
  Age: 90 Year
  Sex: Male
  Weight: 65.6 kg

DRUGS (7)
  1. OLMETEC [Suspect]
     Indication: ESSENTIAL HYPERTENSION
     Dosage: 10 MG BID PO
     Route: 048
     Dates: start: 20041206, end: 20051011
  2. BAYLOTENSIN [Concomitant]
  3. HISRACK [Concomitant]
  4. VALTREX [Concomitant]
  5. EURODIN [Concomitant]
  6. LASIX [Concomitant]
  7. SONACON [Concomitant]

REACTIONS (2)
  - CHOLELITHIASIS [None]
  - HEPATITIS [None]
